FAERS Safety Report 5228590-X (Version None)
Quarter: 2007Q1

REPORT INFORMATION
  Report Type: 
  Country: None (occurrence: None)
  Receive Date: 20070205
  Receipt Date: 20070124
  Transmission Date: 20070707
  Serious: Yes (Death, Hospitalization)
  Sender: FDA-Public Use
  Company Number: CA-NOVOPROD-259834

PATIENT
  Age: 46 Year
  Sex: Male
  Weight: 98 kg

DRUGS (3)
  1. NIASTASE [Suspect]
     Indication: POST PROCEDURAL HAEMORRHAGE
     Dosage: 90 UG/KG, UNK
     Route: 042
     Dates: start: 20060606, end: 20060101
  2. NIASTASE [Suspect]
     Dosage: 4.8 MG, UNK
     Route: 042
     Dates: start: 20060606, end: 20060101
  3. APROTININ [Concomitant]

REACTIONS (3)
  - CARDIAC TAMPONADE [None]
  - CATHETER RELATED COMPLICATION [None]
  - PERIPHERAL ISCHAEMIA [None]
